APPROVED DRUG PRODUCT: OXCARBAZEPINE
Active Ingredient: OXCARBAZEPINE
Strength: 600MG
Dosage Form/Route: TABLET, EXTENDED RELEASE;ORAL
Application: A219241 | Product #003
Applicant: AUROBINDO PHARMA LTD
Approved: Apr 30, 2025 | RLD: No | RS: No | Type: DISCN